FAERS Safety Report 12596968 (Version 1)
Quarter: 2016Q3

REPORT INFORMATION
  Report Type: Spontaneous
  Country: SE (occurrence: SE)
  Receive Date: 20160727
  Receipt Date: 20160727
  Transmission Date: 20161109
  Serious: Yes (Hospitalization)
  Sender: FDA-Public Use
  Company Number: PHHY2016SE100194

PATIENT
  Age: 85 Year
  Sex: Male

DRUGS (2)
  1. SANDIMMUN [Suspect]
     Active Substance: CYCLOSPORINE
     Indication: PRODUCT USED FOR UNKNOWN INDICATION
     Dosage: UNK
     Route: 065
     Dates: end: 20160603
  2. SANDIMMUN [Suspect]
     Active Substance: CYCLOSPORINE
     Dosage: UNK
     Route: 065

REACTIONS (2)
  - Blood creatinine increased [Recovered/Resolved]
  - Hallucination, visual [Recovered/Resolved]

NARRATIVE: CASE EVENT DATE: 20160603
